FAERS Safety Report 23937013 (Version 1)
Quarter: 2024Q2

REPORT INFORMATION
  Report Type: Spontaneous
  Country: US (occurrence: None)
  Receive Date: 20240603
  Receipt Date: 20240603
  Transmission Date: 20240716
  Serious: Yes (Hospitalization, Disabling, Other)
  Sender: FDA-Public Use
  Company Number: None

PATIENT
  Age: 39 Year
  Sex: Female
  Weight: 75.6 kg

DRUGS (5)
  1. VRAYLAR [Suspect]
     Active Substance: CARIPRAZINE
     Dates: start: 20230824, end: 20231109
  2. DOXEPIN [Suspect]
     Active Substance: DOXEPIN
  3. ZIPRASIDONE [Suspect]
     Active Substance: ZIPRASIDONE
  4. TOPAMAX [Suspect]
     Active Substance: TOPIRAMATE
  5. ATIVAN [Suspect]
     Active Substance: LORAZEPAM

REACTIONS (19)
  - Product availability issue [None]
  - Cerebrovascular accident [None]
  - Muscle twitching [None]
  - Loss of consciousness [None]
  - Fall [None]
  - Speech disorder [None]
  - Joint contracture [None]
  - Post-traumatic stress disorder [None]
  - Urinary incontinence [None]
  - Binge eating [None]
  - Abulia [None]
  - Refusal of treatment by patient [None]
  - Monoplegia [None]
  - Monoplegia [None]
  - Muscular weakness [None]
  - Pain [None]
  - Generalised tonic-clonic seizure [None]
  - Dizziness [None]
  - Ill-defined disorder [None]

NARRATIVE: CASE EVENT DATE: 20230827
